FAERS Safety Report 10058141 (Version 1)
Quarter: 2014Q2

REPORT INFORMATION
  Report Type: Spontaneous
  Country: US (occurrence: None)
  Receive Date: 20140403
  Receipt Date: 20140403
  Transmission Date: 20141212
  Serious: Yes (Other)
  Sender: FDA-Public Use
  Company Number: None

PATIENT
  Age: 64 Year
  Sex: Female

DRUGS (1)
  1. TECFIDERA [Suspect]
     Indication: MULTIPLE SCLEROSIS
     Dosage: TECFIDERA STARTER PACK TWICE A DAY BY MOUTH?
     Route: 048
     Dates: start: 201310, end: 201310

REACTIONS (2)
  - Barrett^s oesophagus [None]
  - Drug ineffective [None]
